FAERS Safety Report 7295429-0 (Version None)
Quarter: 2011Q1

REPORT INFORMATION
  Report Type: 
  Country: None (occurrence: None)
  Receive Date: 20110216
  Receipt Date: 20110117
  Transmission Date: 20110831
  Serious: No
  Sender: FDA-Public Use
  Company Number: US-ABBOTT-11P-163-0698038-00

PATIENT
  Sex: Male

DRUGS (3)
  1. SIMCOR [Suspect]
     Dosage: 1000/40MG AT NIGHT
  2. SIMCOR [Suspect]
     Indication: HYPERLIPIDAEMIA
     Dosage: 500/20MG
     Dates: start: 20101213
  3. LOVAZA [Concomitant]
     Indication: PRODUCT USED FOR UNKNOWN INDICATION

REACTIONS (3)
  - FLUSHING [None]
  - SKIN BURNING SENSATION [None]
  - DYSPEPSIA [None]
